FAERS Safety Report 8036846 (Version 6)
Quarter: 2013Q2

REPORT INFORMATION
  Report Type: Spontaneous
  Country: US (occurrence: US)
  Receive Date: 20110715
  Receipt Date: 20130520
  Transmission Date: 20140414
  Serious: Yes (Death, Hospitalization)
  Sender: FDA-Public Use
  Company Number: US-B.I. PHARMACEUTICALS,INC./RIDGEFIELD-2011-BP-17633BP

PATIENT
  Age: 84 Year
  Sex: Male
  Weight: 68.04 kg

DRUGS (12)
  1. PRADAXA [Suspect]
     Indication: ATRIAL FIBRILLATION
     Dosage: 300 MG
     Route: 048
     Dates: start: 20110707, end: 20110711
  2. SYMBICORT [Concomitant]
     Dosage: 4 PUF
  3. LASIX [Concomitant]
     Dosage: 80 MG
  4. K-DUR [Concomitant]
     Dosage: 10 MEQ
  5. FOLIC ACID [Concomitant]
     Dosage: 1 MG
  6. AMBIEN [Concomitant]
     Dosage: 10 MG
  7. PRILOSEC [Concomitant]
     Dosage: 20 MG
  8. LISINOPRIL [Concomitant]
     Dosage: 2.5 MG
  9. METOPROLOL [Concomitant]
     Dosage: 25 MG
  10. ZETIA [Concomitant]
     Dosage: 10 MG
  11. TAMSULOSIN HYDROCHLORIDE [Concomitant]
     Dosage: 0.4 MG
  12. PERCOCET [Concomitant]
     Indication: PAIN

REACTIONS (6)
  - Lower gastrointestinal haemorrhage [Fatal]
  - Shock haemorrhagic [Fatal]
  - Rectal haemorrhage [Fatal]
  - Hypotension [Fatal]
  - Occult blood positive [Unknown]
  - Chest pain [Recovered/Resolved]
